FAERS Safety Report 23976848 (Version 1)
Quarter: 2024Q2

REPORT INFORMATION
  Report Type: Report from Study
  Country: US (occurrence: US)
  Receive Date: 20240614
  Receipt Date: 20240614
  Transmission Date: 20240717
  Serious: Yes (Other)
  Sender: FDA-Public Use
  Company Number: US-SUN PHARMACEUTICAL INDUSTRIES LTD-2024R1-451160

PATIENT
  Age: 62 Year
  Sex: Female

DRUGS (1)
  1. HYDROXYCHLOROQUINE [Suspect]
     Active Substance: HYDROXYCHLOROQUINE
     Indication: Systemic lupus erythematosus
     Dosage: 400 MILLIGRAM, DAILY
     Route: 065

REACTIONS (10)
  - Akinesia [Unknown]
  - Cardiotoxicity [Unknown]
  - Hypertrophic cardiomyopathy [Unknown]
  - Hypertrophy [Unknown]
  - Hypokinesia [Unknown]
  - Fibrosis [Unknown]
  - Left ventricle outflow tract obstruction [Unknown]
  - Red blood cell vacuolisation [Unknown]
  - Ventricular dysfunction [Unknown]
  - Wall motion score index abnormal [Unknown]
